FAERS Safety Report 5828009-1 (Version None)
Quarter: 2008Q3

REPORT INFORMATION
  Report Type: 
  Country: None (occurrence: None)
  Receive Date: 20080728
  Receipt Date: 20080717
  Transmission Date: 20090109
  Serious: Yes (Life-Threatening, Hospitalization)
  Sender: FDA-Public Use
  Company Number: 20085398

PATIENT
  Sex: Female

DRUGS (1)
  1. LIORESAL [Suspect]
     Indication: MUSCLE SPASTICITY
     Dosage: 98 MCG, DAILY; INTRATHECAL
     Route: 039

REACTIONS (7)
  - DIZZINESS [None]
  - HEART RATE DECREASED [None]
  - OVERDOSE [None]
  - PHARMACEUTICAL PRODUCT COMPLAINT [None]
  - POOR VENOUS ACCESS [None]
  - RESPIRATORY DEPRESSION [None]
  - SOMNOLENCE [None]
